FAERS Safety Report 17707550 (Version 28)
Quarter: 2021Q2

REPORT INFORMATION
  Report Type: Report from Study
  Country: CN (occurrence: CN)
  Receive Date: 20200424
  Receipt Date: 20210601
  Transmission Date: 20210716
  Serious: Yes (Hospitalization)
  Sender: FDA-Public Use
  Company Number: CN-ASTELLAS-2020US014396

PATIENT
  Age: 19 Year
  Sex: Female

DRUGS (56)
  1. ASP2215 [Suspect]
     Active Substance: GILTERITINIB
     Route: 048
     Dates: start: 20210224, end: 20210408
  2. CALCIUM GLUCONATE. [Concomitant]
     Active Substance: CALCIUM GLUCONATE
     Dosage: 1 G, ONCE
     Route: 042
     Dates: start: 20200209, end: 20200209
  3. CALCIUM GLUCONATE. [Concomitant]
     Active Substance: CALCIUM GLUCONATE
     Dosage: 1 G, ONCE
     Route: 042
     Dates: start: 20200214, end: 20200214
  4. CALCIUM GLUCONATE. [Concomitant]
     Active Substance: CALCIUM GLUCONATE
     Dosage: 1 G, ONCE
     Route: 042
     Dates: start: 20200215, end: 20200215
  5. CALCIUM GLUCONATE. [Concomitant]
     Active Substance: CALCIUM GLUCONATE
     Dosage: 1 G, ONCE
     Route: 042
     Dates: start: 20200303, end: 20200303
  6. IBUPROFEN. [Concomitant]
     Active Substance: IBUPROFEN
     Dosage: 0.3 G, ONCE (SUSTAINED RELEASE CAPSULE)
     Route: 048
     Dates: start: 20200220, end: 20200220
  7. LORATADINE. [Concomitant]
     Active Substance: LORATADINE
     Indication: INSOMNIA
     Dosage: 10 MG, ONCE
     Route: 048
     Dates: start: 20200311, end: 20200311
  8. CALCIUM GLUCONATE. [Concomitant]
     Active Substance: CALCIUM GLUCONATE
     Dosage: 1 G, ONCE
     Route: 042
     Dates: start: 20200311, end: 20200311
  9. IBUPROFEN. [Concomitant]
     Active Substance: IBUPROFEN
     Dosage: 0.3 G, ONCE (SUSTAINED RELEASE CAPSULE)
     Route: 048
     Dates: start: 20200222, end: 20200222
  10. ETAMSYLATE [Concomitant]
     Active Substance: ETHAMSYLATE
     Indication: HAEMORRHAGE PROPHYLAXIS
     Dosage: 1 G, ONCE
     Route: 042
     Dates: start: 20200311, end: 20200403
  11. ASP2215 [Suspect]
     Active Substance: GILTERITINIB
     Route: 048
     Dates: start: 20200927, end: 20201016
  12. ASP2215 [Suspect]
     Active Substance: GILTERITINIB
     Route: 048
     Dates: start: 20201029, end: 20210210
  13. CALCIUM GLUCONATE. [Concomitant]
     Active Substance: CALCIUM GLUCONATE
     Dosage: 1 G, ONCE
     Route: 042
     Dates: start: 20200205, end: 20200205
  14. CALCIUM GLUCONATE. [Concomitant]
     Active Substance: CALCIUM GLUCONATE
     Dosage: 1 G, ONCE
     Route: 042
     Dates: start: 20200216, end: 20200216
  15. CALCIUM GLUCONATE. [Concomitant]
     Active Substance: CALCIUM GLUCONATE
     Dosage: 1 G, ONCE
     Route: 042
     Dates: start: 20200217, end: 20200217
  16. CALCIUM GLUCONATE. [Concomitant]
     Active Substance: CALCIUM GLUCONATE
     Dosage: 1 G, ONCE
     Route: 042
     Dates: start: 20200227, end: 20200227
  17. CALCIUM GLUCONATE. [Concomitant]
     Active Substance: CALCIUM GLUCONATE
     Dosage: 1 G, ONCE
     Route: 042
     Dates: start: 20200306, end: 20200306
  18. LORATADINE. [Concomitant]
     Active Substance: LORATADINE
     Indication: ALLERGY PROPHYLAXIS
     Route: 048
     Dates: start: 20200928, end: 20201001
  19. MOXIFLOXACIN HYDROCHLORIDE. [Concomitant]
     Active Substance: MOXIFLOXACIN HYDROCHLORIDE
     Dosage: 0.4 G, ONCE DAILY
     Route: 048
     Dates: start: 20201015, end: 20201019
  20. ASP2215 [Suspect]
     Active Substance: GILTERITINIB
     Route: 048
     Dates: start: 20200904, end: 20200922
  21. CALCIUM GLUCONATE. [Concomitant]
     Active Substance: CALCIUM GLUCONATE
     Dosage: 1 G, ONCE
     Route: 042
     Dates: start: 20200206, end: 20200206
  22. CALCIUM GLUCONATE. [Concomitant]
     Active Substance: CALCIUM GLUCONATE
     Dosage: 1 G, ONCE
     Route: 042
     Dates: start: 20200212, end: 20200212
  23. CALCIUM GLUCONATE. [Concomitant]
     Active Substance: CALCIUM GLUCONATE
     Dosage: 1 G, ONCE
     Route: 042
     Dates: start: 20200229, end: 20200229
  24. CALCIUM GLUCONATE. [Concomitant]
     Active Substance: CALCIUM GLUCONATE
     Dosage: 1 G, ONCE
     Route: 042
     Dates: start: 20200304, end: 20200304
  25. CALCIUM GLUCONATE. [Concomitant]
     Active Substance: CALCIUM GLUCONATE
     Dosage: 1 G, ONCE
     Route: 042
     Dates: start: 20200307, end: 20200307
  26. CALCIUM GLUCONATE. [Concomitant]
     Active Substance: CALCIUM GLUCONATE
     Dosage: 1 G, ONCE
     Route: 042
     Dates: start: 20200312, end: 20200312
  27. CALCIUM GLUCONATE. [Concomitant]
     Active Substance: CALCIUM GLUCONATE
     Dosage: 1 G, ONCE
     Route: 042
     Dates: start: 20200315, end: 20200315
  28. CALCIUM GLUCONATE. [Concomitant]
     Active Substance: CALCIUM GLUCONATE
     Dosage: 1 G, ONCE
     Route: 042
     Dates: start: 20200316, end: 20200316
  29. CELECOXIB. [Concomitant]
     Active Substance: CELECOXIB
     Indication: ARTHRALGIA
     Dosage: 200 MG, ONCE
     Route: 048
     Dates: start: 20200220, end: 20200220
  30. CALCIUM GLUCONATE. [Concomitant]
     Active Substance: CALCIUM GLUCONATE
     Dosage: 1 G, ONCE
     Route: 042
     Dates: start: 20200220, end: 20200220
  31. CALCIUM GLUCONATE. [Concomitant]
     Active Substance: CALCIUM GLUCONATE
     Dosage: 1 G, ONCE
     Route: 042
     Dates: start: 20200305, end: 20200305
  32. CALCIUM GLUCONATE. [Concomitant]
     Active Substance: CALCIUM GLUCONATE
     Dosage: 1 G, ONCE
     Route: 042
     Dates: start: 20200308, end: 20200308
  33. CALCIUM GLUCONATE. [Concomitant]
     Active Substance: CALCIUM GLUCONATE
     Dosage: 1 G, ONCE
     Route: 042
     Dates: start: 20200309, end: 20200309
  34. MOXIFLOXACIN HYDROCHLORIDE. [Concomitant]
     Active Substance: MOXIFLOXACIN HYDROCHLORIDE
     Indication: INFECTION PROPHYLAXIS
     Route: 048
     Dates: start: 20200312, end: 20200320
  35. ASP2215 [Suspect]
     Active Substance: GILTERITINIB
     Route: 048
     Dates: start: 20210411
  36. CALCIUM GLUCONATE. [Concomitant]
     Active Substance: CALCIUM GLUCONATE
     Dosage: 1 G, ONCE
     Route: 042
     Dates: start: 20200225, end: 20200225
  37. NORETHISTERONE [Concomitant]
     Active Substance: NORETHINDRONE
     Indication: VAGINAL HAEMORRHAGE
     Route: 048
     Dates: start: 20200302, end: 20200306
  38. DEXAMETHASONE SODIUM PHOSPHATE. [Concomitant]
     Active Substance: DEXAMETHASONE SODIUM PHOSPHATE
     Indication: ACUTE MYELOID LEUKAEMIA
     Dosage: 5 MG, ONCE
     Route: 042
     Dates: start: 20200311, end: 20200311
  39. MOXIFLOXACIN HYDROCHLORIDE. [Concomitant]
     Active Substance: MOXIFLOXACIN HYDROCHLORIDE
     Dosage: 0.4 G, ONCE DAILY
     Route: 048
     Dates: start: 20200803, end: 20200804
  40. ASP2215 [Suspect]
     Active Substance: GILTERITINIB
     Indication: ACUTE MYELOID LEUKAEMIA
     Route: 048
     Dates: start: 20200204, end: 20200507
  41. ASP2215 [Suspect]
     Active Substance: GILTERITINIB
     Route: 048
     Dates: start: 20200724, end: 20200824
  42. CALCIUM GLUCONATE. [Concomitant]
     Active Substance: CALCIUM GLUCONATE
     Dosage: 1 G, ONCE
     Route: 042
     Dates: start: 20200210, end: 20200210
  43. CALCIUM GLUCONATE. [Concomitant]
     Active Substance: CALCIUM GLUCONATE
     Dosage: 1 G, ONCE
     Route: 042
     Dates: start: 20200218, end: 20200218
  44. CALCIUM GLUCONATE. [Concomitant]
     Active Substance: CALCIUM GLUCONATE
     Dosage: 1 G, ONCE
     Route: 042
     Dates: start: 20200219, end: 20200219
  45. CALCIUM GLUCONATE. [Concomitant]
     Active Substance: CALCIUM GLUCONATE
     Dosage: 1 G, ONCE
     Route: 042
     Dates: start: 20200222, end: 20200222
  46. CALCIUM GLUCONATE. [Concomitant]
     Active Substance: CALCIUM GLUCONATE
     Dosage: 1 G, ONCE
     Route: 042
     Dates: start: 20200226, end: 20200226
  47. CALCIUM GLUCONATE. [Concomitant]
     Active Substance: CALCIUM GLUCONATE
     Dosage: 1 G, ONCE
     Route: 042
     Dates: start: 20200313, end: 20200313
  48. CALCIUM GLUCONATE. [Concomitant]
     Active Substance: CALCIUM GLUCONATE
     Dosage: 1 G, ONCE
     Route: 042
     Dates: start: 20200314, end: 20200314
  49. LEVOFLOXACIN LACTATE [Concomitant]
     Active Substance: LEVOFLOXACIN LACTATE
     Indication: INFECTION PROPHYLAXIS
     Dosage: 1 G, ONCE
     Route: 048
     Dates: start: 20200308, end: 20200308
  50. CALCIUM GLUCONATE. [Concomitant]
     Active Substance: CALCIUM GLUCONATE
     Indication: PROPHYLAXIS
     Dosage: 1 G, ONCE
     Route: 042
     Dates: start: 20200204, end: 20200204
  51. CALCIUM GLUCONATE. [Concomitant]
     Active Substance: CALCIUM GLUCONATE
     Dosage: 1 G, ONCE
     Route: 042
     Dates: start: 20200223, end: 20200223
  52. CALCIUM GLUCONATE. [Concomitant]
     Active Substance: CALCIUM GLUCONATE
     Dosage: 1 G, ONCE
     Route: 042
     Dates: start: 20200228, end: 20200228
  53. CALCIUM GLUCONATE. [Concomitant]
     Active Substance: CALCIUM GLUCONATE
     Dosage: 1 G, ONCE
     Route: 042
     Dates: start: 20200302, end: 20200302
  54. IBUPROFEN. [Concomitant]
     Active Substance: IBUPROFEN
     Indication: ARTHRALGIA
     Dosage: 0.3 G, ONCE (SUSTAINED RELEASE CAPSULE)
     Route: 048
     Dates: start: 20200219, end: 20200219
  55. CEFOPERAZONE SODIUM AND SULBACTAM SODIUM [Concomitant]
     Active Substance: CEFOPERAZONE SODIUM\SULBACTAM SODIUM
     Indication: PNEUMONIA
     Route: 042
     Dates: start: 20200222, end: 20200226
  56. PARACETAMOL [Concomitant]
     Active Substance: ACETAMINOPHEN
     Indication: PYREXIA
     Dosage: 0.5 G, ONCE
     Route: 048
     Dates: start: 20200222, end: 20200222

REACTIONS (8)
  - Pancytopenia [Recovered/Resolved]
  - Rash [Recovered/Resolved]
  - Mouth ulceration [Recovered/Resolved]
  - Oral herpes [Recovered/Resolved]
  - Cytomegalovirus test positive [Recovered/Resolved]
  - Thrombocytopenia [Recovered/Resolved]
  - Pain in extremity [Recovered/Resolved]
  - Mucosal infection [Recovered/Resolved]

NARRATIVE: CASE EVENT DATE: 20200317
